FAERS Safety Report 7447801 (Version 3)
Quarter: 2013Q3

REPORT INFORMATION
  Report Type: Spontaneous
  Country: US (occurrence: US)
  Receive Date: 20100630
  Receipt Date: 20130917
  Transmission Date: 20140515
  Serious: Yes (Hospitalization, Other)
  Sender: FDA-Public Use
  Company Number: US-PFIZER INC-2009167429

PATIENT
  Age: 60 Year
  Sex: Male
  Weight: 77.1 kg

DRUGS (6)
  1. VIAGRA [Suspect]
     Indication: ERECTILE DYSFUNCTION
     Dosage: UNKNOWN
     Dates: start: 2006
  2. VIAGRA [Suspect]
     Dosage: 100 MG, UNK
  3. TRI-MIX (PPP) [Suspect]
     Dosage: UNK
  4. LIPITOR [Concomitant]
     Indication: BLOOD CHOLESTEROL INCREASED
     Dosage: UNK
  5. GLYBURIDE [Concomitant]
     Indication: DIABETES MELLITUS
     Dosage: UNK
  6. LOSARTAN [Concomitant]
     Indication: HYPERTENSION
     Dosage: UNK

REACTIONS (4)
  - Erection increased [Unknown]
  - Prostate cancer [Unknown]
  - Prostatic disorder [Unknown]
  - Drug ineffective [Not Recovered/Not Resolved]
